FAERS Safety Report 15766962 (Version 2)
Quarter: 2019Q1

REPORT INFORMATION
  Report Type: Spontaneous
  Country: BR (occurrence: BR)
  Receive Date: 20181227
  Receipt Date: 20190109
  Transmission Date: 20190417
  Serious: Yes (Hospitalization)
  Sender: FDA-Public Use
  Company Number: BR-TAKEDA-2018TUS036591

PATIENT
  Age: 41 Year
  Sex: Male
  Weight: 66 kg

DRUGS (2)
  1. ENTYVIO [Suspect]
     Active Substance: VEDOLIZUMAB
     Indication: CROHN^S DISEASE
     Dosage: 300 MG, UNK
     Route: 042
     Dates: start: 201808
  2. NEBACETIN [Suspect]
     Active Substance: BACITRACIN ZINC\NEOMYCIN SULFATE
     Indication: CELLULITIS
     Dosage: UNK
     Route: 061
     Dates: start: 20181218

REACTIONS (2)
  - Cellulitis [Recovered/Resolved]
  - Cough [Recovered/Resolved]

NARRATIVE: CASE EVENT DATE: 2018
